FAERS Safety Report 13162237 (Version 1)
Quarter: 2017Q1

REPORT INFORMATION
  Report Type: Spontaneous
  Country: US (occurrence: US)
  Receive Date: 20170126
  Receipt Date: 20170126
  Transmission Date: 20170428
  Serious: No
  Sender: FDA-Public Use
  Company Number: None

PATIENT
  Age: 69 Year
  Sex: Male

DRUGS (1)
  1. STIVARGA [Suspect]
     Active Substance: REGORAFENIB
     Indication: MALAISE
     Dosage: 160MG 4 TABLETS OF 40MG EACH BY MOUTH
     Route: 048
     Dates: start: 20161121, end: 20170123

REACTIONS (2)
  - Diarrhoea [None]
  - Dysphonia [None]

NARRATIVE: CASE EVENT DATE: 20161125
